FAERS Safety Report 8247197-3 (Version None)
Quarter: 2012Q1

REPORT INFORMATION
  Report Type: 
  Country: None (occurrence: None)
  Receive Date: 20120330
  Receipt Date: 20120322
  Transmission Date: 20120608
  Serious: Yes (Hospitalization)
  Sender: FDA-Public Use
  Company Number: US-BAYER-200942579NA

PATIENT
  Age: 24 Year
  Sex: Female
  Weight: 59 kg

DRUGS (10)
  1. YAZ [Suspect]
     Indication: ACNE
  2. CEFTIN [Concomitant]
  3. ZOLPIDEM TARTRATE [Concomitant]
     Dosage: 10 MG, UNK
     Route: 048
  4. PREDNISONE TAB [Concomitant]
  5. METRONIDAZOLE [Concomitant]
     Dosage: 500 MG, UNK
     Route: 048
  6. YAZ [Suspect]
     Indication: ORAL CONTRACEPTION
     Dosage: UNK UNK, UNK
     Route: 048
     Dates: start: 20070918, end: 20081206
  7. COUMADIN [Concomitant]
     Dosage: 5 MG (DAILY DOSE), ,
  8. ACETAMINOPHEN [Concomitant]
     Dosage: AS NEEDED
  9. PEPCID [Concomitant]
  10. PREDNISONE TAB [Concomitant]

REACTIONS (7)
  - PALPITATIONS [None]
  - PULMONARY EMBOLISM [None]
  - RALES [None]
  - DYSPNOEA [None]
  - PLEURITIC PAIN [None]
  - CHEST DISCOMFORT [None]
  - PLEURISY [None]
